FAERS Safety Report 12189932 (Version 2)
Quarter: 2016Q2

REPORT INFORMATION
  Report Type: Spontaneous
  Country: CA (occurrence: CA)
  Receive Date: 20160318
  Receipt Date: 20160415
  Transmission Date: 20160815
  Serious: Yes (Other)
  Sender: FDA-Public Use
  Company Number: CA-AMGEN-CANSP2016031672

PATIENT
  Age: 66 Year
  Sex: Male

DRUGS (3)
  1. METHOTREXATE [Concomitant]
     Active Substance: METHOTREXATE
     Dosage: UNK
  2. ENBREL [Suspect]
     Active Substance: ETANERCEPT
     Indication: RHEUMATOID ARTHRITIS
     Dosage: UNK
     Route: 065
  3. XELJANZ [Concomitant]
     Active Substance: TOFACITINIB CITRATE
     Dosage: 5 MG, BID
     Route: 048
     Dates: start: 20160317

REACTIONS (7)
  - Pain [Unknown]
  - Cough [Not Recovered/Not Resolved]
  - Gastric disorder [Unknown]
  - Headache [Unknown]
  - Seronegative arthritis [Unknown]
  - Abdominal pain upper [Unknown]
  - Painful respiration [Unknown]

NARRATIVE: CASE EVENT DATE: 201601
